FAERS Safety Report 19734571 (Version 1)
Quarter: 2021Q3

REPORT INFORMATION
  Report Type: Spontaneous
  Country: US (occurrence: US)
  Receive Date: 20210824
  Receipt Date: 20210824
  Transmission Date: 20211014
  Serious: Yes (Other)
  Sender: FDA-Public Use
  Company Number: US-MTPC-MTPC2021-0020228

PATIENT

DRUGS (2)
  1. IBUDILAST [Concomitant]
     Active Substance: IBUDILAST
     Indication: AMYOTROPHIC LATERAL SCLEROSIS
     Dosage: 100 MILLIGRAM, QD
     Route: 048
  2. EDARAVONE [Suspect]
     Active Substance: EDARAVONE
     Indication: AMYOTROPHIC LATERAL SCLEROSIS
     Route: 042

REACTIONS (1)
  - Device related infection [Unknown]
